FAERS Safety Report 12185216 (Version 1)
Quarter: 2016Q1

REPORT INFORMATION
  Report Type: Spontaneous
  Country: JP (occurrence: JP)
  Receive Date: 20160316
  Receipt Date: 20160316
  Transmission Date: 20160526
  Serious: Yes (Hospitalization)
  Sender: FDA-Public Use
  Company Number: JP-FRESENIUS KABI-FK201601277

PATIENT
  Age: 62 Year
  Sex: Male
  Weight: 66 kg

DRUGS (8)
  1. FOLINIC ACID [Concomitant]
     Active Substance: LEUCOVORIN
     Indication: METASTASES TO LIVER
  2. FOLINIC ACID [Concomitant]
     Active Substance: LEUCOVORIN
     Indication: COLON CANCER STAGE IV
     Route: 042
  3. PANITUMUMAB [Concomitant]
     Active Substance: PANITUMUMAB
     Indication: COLON CANCER STAGE IV
  4. FLUOROURACIL (MANUFACTURER UNKNOWN) [Suspect]
     Active Substance: FLUOROURACIL
     Indication: COLON CANCER STAGE IV
     Route: 040
  5. OXALIPLATIN. [Concomitant]
     Active Substance: OXALIPLATIN
     Indication: COLON CANCER STAGE IV
     Route: 042
  6. OXALIPLATIN. [Concomitant]
     Active Substance: OXALIPLATIN
     Indication: METASTASES TO LIVER
  7. PANITUMUMAB [Concomitant]
     Active Substance: PANITUMUMAB
     Indication: METASTASES TO LIVER
  8. FLUOROURACIL (MANUFACTURER UNKNOWN) [Suspect]
     Active Substance: FLUOROURACIL
     Indication: METASTASES TO LIVER
     Route: 041

REACTIONS (1)
  - Hyperammonaemic encephalopathy [Recovered/Resolved]
